FAERS Safety Report 5620793-5 (Version None)
Quarter: 2008Q1

REPORT INFORMATION
  Report Type: 
  Country: None (occurrence: None)
  Receive Date: 20080208
  Receipt Date: 20080129
  Transmission Date: 20080703
  Serious: Yes (Other)
  Sender: FDA-Public Use
  Company Number: US-PFIZER INC-2007040395

PATIENT
  Sex: Female
  Weight: 68.9 kg

DRUGS (13)
  1. CHANTIX [Suspect]
     Indication: SMOKING CESSATION THERAPY
  2. XANAX [Suspect]
     Indication: SLEEP DISORDER
  3. XANAX [Suspect]
     Indication: PANIC ATTACK
  4. XANAX [Suspect]
     Indication: NERVOUSNESS
  5. ADVAIR DISKUS 100/50 [Concomitant]
  6. IPRATROPIUM BROMIDE [Concomitant]
  7. ALBUTEROL [Concomitant]
  8. PULMICORT [Concomitant]
     Indication: ASTHMA
  9. DILTIAZEM [Concomitant]
     Indication: HYPERTENSION
  10. PAROXETINE [Concomitant]
     Indication: ANTIDEPRESSANT THERAPY
  11. ZOCOR [Concomitant]
  12. SINGULAIR [Concomitant]
     Indication: ASTHMA
  13. OTHER ANTI-ASTHMATICS, INHALANTS [Concomitant]

REACTIONS (6)
  - ABNORMAL DREAMS [None]
  - ASTHENIA [None]
  - DRUG INEFFECTIVE [None]
  - DYSPNOEA [None]
  - SMOKER [None]
  - SOMNOLENCE [None]
